FAERS Safety Report 9049678 (Version 1)
Quarter: 2013Q1

REPORT INFORMATION
  Report Type: Spontaneous
  Country: JP (occurrence: JP)
  Receive Date: 20130205
  Receipt Date: 20130205
  Transmission Date: 20140127
  Serious: Yes (Hospitalization)
  Sender: FDA-Public Use
  Company Number: JP-MYLANLABS-2013S1001924

PATIENT
  Age: 5 Year
  Sex: Female

DRUGS (7)
  1. DEXAMETHASONE [Suspect]
     Indication: ACUTE LYMPHOCYTIC LEUKAEMIA
     Dosage: 6 MG/M2, DAYS 1-14
     Route: 048
     Dates: start: 2009
  2. VINCRISTINE [Suspect]
     Indication: ACUTE LYMPHOCYTIC LEUKAEMIA
     Dosage: 2 MG/M2, DAYS 1 AND 8
     Route: 041
     Dates: start: 2009
  3. MERCAPTOPURINE [Suspect]
     Indication: ACUTE LYMPHOCYTIC LEUKAEMIA
     Dosage: 50 MG/M2 DAILY, DAYS 15-56
     Route: 048
     Dates: start: 2009
  4. METHOTREXATE [Suspect]
     Indication: ACUTE LYMPHOCYTIC LEUKAEMIA
     Dosage: 30 MG/M2, DAYS 15, 22, 29, 36, 43, 50.
     Route: 048
     Dates: start: 2009
  5. METHOTREXATE [Suspect]
     Indication: ACUTE LYMPHOCYTIC LEUKAEMIA
     Dosage: 12MG
     Route: 037
     Dates: start: 2009
  6. COTRIMOXAZOLE [Concomitant]
     Indication: ANTIBIOTIC PROPHYLAXIS
     Dosage: 10 MG/KG/DAY (AS TRIMETHOPRIM COMPONENT)
     Route: 048
     Dates: start: 2010
  7. IMMUNE GLOBULIN [Concomitant]
     Dosage: 250-350 MG/KG EVERY MONTH
     Route: 041
     Dates: start: 2009

REACTIONS (2)
  - Cytomegalovirus chorioretinitis [Recovered/Resolved]
  - Pneumocystis jirovecii pneumonia [Recovered/Resolved]
